FAERS Safety Report 6786864-5 (Version None)
Quarter: 2010Q2

REPORT INFORMATION
  Report Type: 
  Country: None (occurrence: None)
  Receive Date: 20100621
  Receipt Date: 20100610
  Transmission Date: 20101027
  Serious: Yes (Hospitalization)
  Sender: FDA-Public Use
  Company Number: DSA_43096_2010

PATIENT
  Sex: Female
  Weight: 54 kg

DRUGS (23)
  1. LORAZEPAM [Suspect]
     Indication: DEPRESSION
     Dosage: DF
     Dates: start: 20080101, end: 20100415
  2. IMC-3G3 (RH ANTI-PDGFRA MAB) [Suspect]
     Indication: OVARIAN CANCER
     Dosage: 1080 MG, 1 IN 2 WK INTRAVENOUS (NOT OTHERWISE SPECIFIED
     Route: 042
     Dates: start: 20100409, end: 20100409
  3. DOXORUBICIN HCL [Suspect]
     Indication: OVARIAN CANCER
     Dosage: 61.76 MG, 1 IN 4 WEEK INTRAVENOUS (NOT OTHERWISE SPECIFIED)
     Route: 042
     Dates: start: 20100409, end: 20100409
  4. PHENTANYL (PHENTANYL)  (NOT SPECIFIED) [Suspect]
     Indication: PAIN
     Dosage: DF TRANSDERMAL
     Route: 062
     Dates: start: 20100311, end: 20100511
  5. FLUOXETIN (FLUOXETIN- FLUOXETINE HYDROCHLORIDE) (NOT SPECIFIED) [Suspect]
     Indication: DEPRESSION
     Dosage: DF
     Dates: start: 20080101, end: 20100415
  6. MORPHINE [Suspect]
     Indication: PAIN
     Dosage: DF
     Dates: start: 20100318, end: 20100415
  7. TRAZODONE HCL [Suspect]
     Indication: DEPRESSION
     Dosage: DF
     Dates: start: 20100311, end: 20100415
  8. ONDANSETRON [Suspect]
     Indication: VOMITING
     Dosage: DF
     Dates: start: 20100325, end: 20100511
  9. HALOPERIDOL [Suspect]
     Indication: DEPRESSION
     Dosage: DF
     Dates: start: 20100415, end: 20100422
  10. DIAZEPAM [Suspect]
     Indication: DEPRESSION
     Dosage: DF
     Dates: start: 20100411, end: 20100515
  11. MACROGOL [Concomitant]
  12. ENOXAPARIN [Concomitant]
  13. COTRIM [Concomitant]
  14. HYDROCORTISONE [Concomitant]
  15. DEXAMETHASONE [Concomitant]
  16. OMEPRAZOLE [Concomitant]
  17. ACETAMINOPHEN [Concomitant]
  18. AUGMENTIN '125' [Concomitant]
  19. UROKINASE [Concomitant]
  20. BLOOD, WHOLE [Concomitant]
  21. PAROXETINE [Concomitant]
  22. METOCLOPRAMIDE [Concomitant]
  23. DOMPERIDONE [Concomitant]

REACTIONS (7)
  - BRADYPHRENIA [None]
  - HAEMOGLOBIN DECREASED [None]
  - OVERDOSE [None]
  - PSEUDOMONAS INFECTION [None]
  - SOMNOLENCE [None]
  - STAPHYLOCOCCAL INFECTION [None]
  - URINARY TRACT INFECTION [None]
